FAERS Safety Report 9394707 (Version 2)
Quarter: 2013Q3

REPORT INFORMATION
  Report Type: Spontaneous
  Country: US (occurrence: US)
  Receive Date: 20130711
  Receipt Date: 20130904
  Transmission Date: 20140515
  Serious: Yes (Hospitalization, Other)
  Sender: FDA-Public Use
  Company Number: US-SANOFI-AVENTIS-2013SA069505

PATIENT
  Age: 59 Year
  Sex: Female
  Weight: 78.47 kg

DRUGS (8)
  1. LANTUS [Suspect]
     Indication: TYPE 2 DIABETES MELLITUS
     Dosage: PRODUCT START DATE:11 YEARS AGO?PRODUCT END DATE: 1.5 MONTHS? DOSE:90 UNIT(S)
     Route: 051
     Dates: start: 1992, end: 20130510
  2. LANTUS [Suspect]
     Indication: TYPE 2 DIABETES MELLITUS
     Dosage: DOSE:90 UNIT(S)
     Route: 051
     Dates: start: 20130719
  3. GABAPENTIN [Concomitant]
     Indication: PAIN
  4. WELLBUTRIN - SLOW RELEASE [Concomitant]
  5. METOPROLOL [Concomitant]
     Indication: CARDIAC DISORDER
  6. ASA [Concomitant]
  7. BENICAR [Concomitant]
  8. CRESTOR [Concomitant]

REACTIONS (5)
  - Diabetic nephropathy [Not Recovered/Not Resolved]
  - Blood cholesterol increased [Unknown]
  - Hyperglycaemia [Not Recovered/Not Resolved]
  - Stress [Unknown]
  - Blood glucose abnormal [Unknown]
